FAERS Safety Report 13019940 (Version 1)
Quarter: 2016Q4

REPORT INFORMATION
  Report Type: Spontaneous
  Country: US (occurrence: US)
  Receive Date: 20161212
  Receipt Date: 20161212
  Transmission Date: 20170207
  Serious: Yes (Disabling)
  Sender: FDA-Public Use
  Company Number: US-ROCHE-1768193

PATIENT
  Age: 88 Year
  Sex: Female

DRUGS (2)
  1. LUCENTIS [Suspect]
     Active Substance: RANIBIZUMAB
     Indication: MACULAR OEDEMA
     Dosage: 27/MAY/2016, NOST RECENT DOSE PRIOR TO SAE
     Route: 065
     Dates: start: 20110114, end: 20160527
  2. LUCENTIS [Suspect]
     Active Substance: RANIBIZUMAB
     Indication: MACULAR DEGENERATION

REACTIONS (1)
  - Endophthalmitis [Recovered/Resolved with Sequelae]

NARRATIVE: CASE EVENT DATE: 20160527
